FAERS Safety Report 12496809 (Version 1)
Quarter: 2016Q2

REPORT INFORMATION
  Report Type: Spontaneous
  Country: JP (occurrence: JP)
  Receive Date: 20160624
  Receipt Date: 20160624
  Transmission Date: 20160815
  Serious: Yes (Death, Hospitalization, Other)
  Sender: FDA-Public Use
  Company Number: JP-AMGEN-JPNSP2016082114

PATIENT

DRUGS (1)
  1. REGPARA [Suspect]
     Active Substance: CINACALCET HYDROCHLORIDE
     Indication: PRODUCT USED FOR UNKNOWN INDICATION
     Dosage: UNK
     Route: 065

REACTIONS (12)
  - Fracture [Unknown]
  - Cardiovascular disorder [Fatal]
  - Gastrointestinal disorder [Fatal]
  - Neoplasm malignant [Fatal]
  - Infection [Unknown]
  - Hypocalcaemia [Unknown]
  - Gastrointestinal haemorrhage [Unknown]
  - Cerebrovascular disorder [Unknown]
  - Neoplasm malignant [Unknown]
  - Blood parathyroid hormone decreased [Unknown]
  - Infection [Fatal]
  - Parathyroidectomy [Unknown]
